FAERS Safety Report 5417368-X (Version None)
Quarter: 2007Q3

REPORT INFORMATION
  Report Type: 
  Country: None (occurrence: None)
  Receive Date: 20070814
  Receipt Date: 20070731
  Transmission Date: 20080115
  Serious: Yes (Hospitalization)
  Sender: FDA-Public Use
  Company Number: MPS1-10722

PATIENT
  Sex: Female
  Weight: 60.3 kg

DRUGS (1)
  1. ALDURAZYME [Suspect]
     Indication: MUCOPOLYSACCHARIDOSIS I
     Dosage: 34.75 MG QWK IV
     Route: 042
     Dates: start: 20070501

REACTIONS (2)
  - FALL [None]
  - INJURY [None]
